FAERS Safety Report 7418564-2 (Version None)
Quarter: 2011Q2

REPORT INFORMATION
  Report Type: 
  Country: None (occurrence: None)
  Receive Date: 20110415
  Receipt Date: 20110405
  Transmission Date: 20111010
  Serious: Yes (Other)
  Sender: FDA-Public Use
  Company Number: PHHY2011US24505

PATIENT
  Sex: Female

DRUGS (9)
  1. GILENYA [Suspect]
     Indication: MULTIPLE SCLEROSIS
     Dosage: 0.5 MG, QD
     Route: 048
     Dates: start: 20110311
  2. NEURONTIN [Concomitant]
     Indication: PAIN
     Dosage: 300 MG, QD
     Route: 048
  3. XANAX [Concomitant]
     Indication: ANXIETY
     Dosage: UNK UKN, PRN
     Route: 048
  4. GILENYA [Suspect]
     Dosage: 2 DF, TWO DOSES OF GILENYA TOO CLOSE TOGETHER
     Route: 048
  5. CYMBALTA [Concomitant]
     Indication: DEPRESSION
     Dosage: 60 MG, QD
     Route: 048
  6. AMBIEN [Concomitant]
     Indication: INSOMNIA
     Dosage: 10 MG, QHS, PRN
     Route: 048
  7. MINERAL TAB [Concomitant]
     Dosage: UNK UKN, QD
  8. SUMATRIPTAN [Concomitant]
     Indication: MIGRAINE
     Dosage: 100 MG, PRN
     Route: 048
  9. VITAMINS [Concomitant]
     Dosage: UNK UKN, QD

REACTIONS (7)
  - PALPITATIONS [None]
  - OVERDOSE [None]
  - VOMITING [None]
  - CHEST DISCOMFORT [None]
  - DIZZINESS [None]
  - CHEST PAIN [None]
  - DYSPNOEA [None]
